FAERS Safety Report 9508892 (Version 1)
Quarter: 2013Q3

REPORT INFORMATION
  Report Type: Spontaneous
  Country: US (occurrence: US)
  Receive Date: 20130909
  Receipt Date: 20130909
  Transmission Date: 20140515
  Serious: No
  Sender: FDA-Public Use
  Company Number: US-BRISTOL-MYERS SQUIBB COMPANY-19051721

PATIENT
  Sex: Female

DRUGS (2)
  1. ABILIFY INJECTION [Suspect]
     Indication: DEPRESSION
     Dosage: ABILIFY MAITENA INJECTION
     Dates: start: 201306
  2. ABILIFY DISCMELT TABS [Suspect]
     Indication: DEPRESSION
     Route: 048
     Dates: start: 201303, end: 201305

REACTIONS (2)
  - Feeling abnormal [Unknown]
  - Insomnia [Not Recovered/Not Resolved]
